FAERS Safety Report 17911588 (Version 4)
Quarter: 2021Q2

REPORT INFORMATION
  Report Type: Spontaneous
  Country: US (occurrence: US)
  Receive Date: 20200618
  Receipt Date: 20210415
  Transmission Date: 20210717
  Serious: No
  Sender: FDA-Public Use
  Company Number: US-PFIZER INC-2019-05657

PATIENT
  Age: 58 Year
  Sex: Male

DRUGS (5)
  1. BRAFTOVI [Suspect]
     Active Substance: ENCORAFENIB
     Indication: MALIGNANT MELANOMA
     Dosage: 450 MG, 1X/DAY
     Route: 048
     Dates: start: 20190521
  2. MEKTOVI [Suspect]
     Active Substance: BINIMETINIB
     Dosage: 45.00 MG, 2X/DAY
     Route: 048
  3. MEKTOVI [Suspect]
     Active Substance: BINIMETINIB
     Indication: MALIGNANT MELANOMA
     Dosage: 45.00 MG, 2X/DAY
     Route: 048
     Dates: start: 20190521
  4. MEKTOVI [Suspect]
     Active Substance: BINIMETINIB
     Dosage: 45 MG, 2X/DAY (TAKE 3 TABLETS BY MOUTH TWICE A DAY)
     Route: 048
     Dates: start: 20190521
  5. BRAFTOVI [Suspect]
     Active Substance: ENCORAFENIB
     Dosage: 450 MG, 1X/DAY (TAKE 6 CAPSULES 75MG BY MOUTH ONCE DAILY)
     Route: 048
     Dates: start: 20190521

REACTIONS (11)
  - Nausea [Unknown]
  - Diarrhoea [Unknown]
  - Lymphadenopathy [Unknown]
  - Product dose omission in error [Unknown]
  - Fatigue [Unknown]
  - Nasopharyngitis [Unknown]
  - Memory impairment [Unknown]
  - Neuropathy peripheral [Unknown]
  - Abdominal pain [Unknown]
  - Abdominal pain upper [Unknown]
  - Lung disorder [Unknown]

NARRATIVE: CASE EVENT DATE: 20200615
